FAERS Safety Report 8913693 (Version 2)
Quarter: 2013Q1

REPORT INFORMATION
  Report Type: Spontaneous
  Country: FR (occurrence: None)
  Receive Date: 20121113
  Receipt Date: 20121128
  Transmission Date: 20140127
  Serious: Yes (Hospitalization, Other)
  Sender: FDA-Public Use
  Company Number: AUR-APL-2012-04818

PATIENT
  Age: 77 Year
  Sex: Female

DRUGS (12)
  1. METFORMIN [Suspect]
     Indication: DIABETES MELLITUS
     Dosage: 1000 MG (500 MG, 2 IN 1 D), ORAL
     Route: 048
     Dates: start: 20120928, end: 20121001
  2. LYRICA [Suspect]
     Indication: PRODUCT USED FOR UNKNOWN INDICATION
     Dosage: 100 MG (100 MG, 1 IN 1 D),ORAL
     Route: 048
     Dates: start: 20120504, end: 20121001
  3. ARCOXIA [Suspect]
     Indication: OSTEOARTHRITIS
     Dosage: 60 MG (60 MG, 1 IN 1D), ORAL
     Route: 048
     Dates: end: 20121001
  4. IXPRIM [Suspect]
     Indication: OSTEOARTHRITIS
     Dosage: 6 DOSAGES FORMS (2 DOSAGES FORMS, 3 IN 1 D), ORAL
     Route: 048
     Dates: end: 20121001
  5. HYDROCHLOROTHIAZIDE (HYDROCHLOROTHIAZIDE) [Suspect]
     Indication: HYPERTENSION
     Route: 048
     Dates: end: 20121001
  6. PREDNISONE [Suspect]
     Indication: OSTEOARTHRITIS
     Dates: end: 20121001
  7. ACEBUTOLOL (ACEBUTOLOL) [Concomitant]
  8. CAPTOPRIL (CAPTOPRIL) [Concomitant]
  9. LORAZEPAM (LORAZEPAM) [Concomitant]
  10. PANTOPRAZOLE (PANTOPRAZOLE) [Concomitant]
  11. ASCORBIC ACID, HESPERIDIN METHYLO CHALCONE, RUSCUS ACULEATUS [Concomitant]
  12. DUPHALAC (LACTULOSE) [Concomitant]

REACTIONS (11)
  - Disorientation [None]
  - Somnolence [None]
  - Confusional state [None]
  - Vomiting [None]
  - Dyspnoea at rest [None]
  - Cough [None]
  - Lung disorder [None]
  - Asthenia [None]
  - Tachycardia [None]
  - Gamma-glutamyltransferase increased [None]
  - Pyrexia [None]
